FAERS Safety Report 6445002-9 (Version None)
Quarter: 2009Q4

REPORT INFORMATION
  Report Type: 
  Country: None (occurrence: None)
  Receive Date: 20091116
  Receipt Date: 20091116
  Transmission Date: 20100525
  Serious: Yes (Hospitalization)
  Sender: FDA-Public Use
  Company Number: None

PATIENT
  Sex: Male
  Weight: 64 kg

DRUGS (1)
  1. CYTARABINE [Suspect]
     Dosage: 31.2 MG

REACTIONS (1)
  - FEBRILE NEUTROPENIA [None]
